FAERS Safety Report 20112705 (Version 1)
Quarter: 2021Q4

REPORT INFORMATION
  Report Type: Spontaneous
  Country: CN (occurrence: CN)
  Receive Date: 20211125
  Receipt Date: 20211125
  Transmission Date: 20220303
  Serious: Yes (Hospitalization)
  Sender: FDA-Public Use
  Company Number: CN-BAYER-2021A255434

PATIENT
  Age: 92 Year
  Sex: Male

DRUGS (3)
  1. MOMETASONE FUROATE [Suspect]
     Active Substance: MOMETASONE FUROATE
     Indication: Pruritus
     Dosage: 1 DF, QD
     Route: 061
     Dates: start: 20210904, end: 20210914
  2. MOMETASONE FUROATE [Suspect]
     Active Substance: MOMETASONE FUROATE
     Dosage: 1 DF, QD
     Route: 061
     Dates: start: 20211006, end: 20211016
  3. ECONAZOLE NITRATE\TRIAMCINOLONE [Suspect]
     Active Substance: ECONAZOLE NITRATE\TRIAMCINOLONE
     Indication: Pruritus
     Dosage: 1 DF, QD
     Route: 061
     Dates: start: 20211011, end: 20211027

REACTIONS (5)
  - Drug eruption [Recovering/Resolving]
  - Application site erythema [Recovering/Resolving]
  - Application site telangiectasia [Recovering/Resolving]
  - Erythema [Recovering/Resolving]
  - Telangiectasia [Recovering/Resolving]

NARRATIVE: CASE EVENT DATE: 20211026
